FAERS Safety Report 25005776 (Version 1)
Quarter: 2025Q1

REPORT INFORMATION
  Report Type: Spontaneous
  Country: ES (occurrence: ES)
  Receive Date: 20250224
  Receipt Date: 20250224
  Transmission Date: 20250409
  Serious: Yes (Congenital Anomaly, Other)
  Sender: NOVARTIS
  Company Number: ES-002147023-NVSC2025ES028241

PATIENT
  Sex: Male

DRUGS (1)
  1. ASCIMINIB [Suspect]
     Active Substance: ASCIMINIB
     Indication: Foetal exposure during pregnancy
     Route: 064

REACTIONS (4)
  - Ventricular septal defect [Unknown]
  - Coarctation of the aorta [Unknown]
  - Foetal growth restriction [Unknown]
  - Foetal exposure during pregnancy [Unknown]

NARRATIVE: CASE EVENT DATE: 20240823
